FAERS Safety Report 14704284 (Version 1)
Quarter: 2018Q2

REPORT INFORMATION
  Report Type: Spontaneous
  Country: US (occurrence: US)
  Receive Date: 20180402
  Receipt Date: 20180402
  Transmission Date: 20180711
  Serious: No
  Sender: FDA-Public Use
  Company Number: US-ALLERGAN-1748151US

PATIENT
  Age: 70 Year
  Sex: Female

DRUGS (2)
  1. ASACOL HD [Suspect]
     Active Substance: MESALAMINE
     Indication: COLITIS MICROSCOPIC
     Dosage: 2 DF, BID
     Route: 048
     Dates: start: 20170731, end: 20170816
  2. ASACOL HD [Suspect]
     Active Substance: MESALAMINE
     Dosage: 2 DF, TID
     Route: 048
     Dates: start: 20170816

REACTIONS (4)
  - Drug ineffective [Unknown]
  - Off label use [Unknown]
  - Wrong technique in product usage process [Unknown]
  - Medication residue present [Not Recovered/Not Resolved]

NARRATIVE: CASE EVENT DATE: 20170731
